FAERS Safety Report 7006465-3 (Version None)
Quarter: 2010Q3

REPORT INFORMATION
  Report Type: 
  Country: None (occurrence: None)
  Receive Date: 20100921
  Receipt Date: 20100914
  Transmission Date: 20110219
  Serious: Yes (Hospitalization)
  Sender: FDA-Public Use
  Company Number: DE-AMGEN-QUU434889

PATIENT
  Age: 50 Year
  Sex: Male

DRUGS (5)
  1. NEULASTA [Suspect]
     Indication: CHEMOTHERAPY
  2. PREDNISONE [Concomitant]
  3. VINBLASTINE [Concomitant]
  4. DOXORUBICIN HYDROCHLORIDE [Concomitant]
  5. GEMCITABINE [Concomitant]

REACTIONS (2)
  - PAIN [None]
  - SOMATOFORM DISORDER [None]
